FAERS Safety Report 7326627-5 (Version None)
Quarter: 2011Q1

REPORT INFORMATION
  Report Type: 
  Country: None (occurrence: None)
  Receive Date: 20110302
  Receipt Date: 20110217
  Transmission Date: 20110831
  Serious: Yes (Death, Life-Threatening, Hospitalization, Other)
  Sender: FDA-Public Use
  Company Number: US-ACTELION-A-US2011-44586

PATIENT

DRUGS (2)
  1. TRACLEER [Suspect]
     Indication: PULMONARY ARTERIAL HYPERTENSION
     Dosage: UNK
     Route: 048
     Dates: start: 20101103, end: 20110131
  2. CALCIUM CHANNEL BLOCKERS [Concomitant]

REACTIONS (3)
  - EMPHYSEMA [None]
  - RESPIRATORY FAILURE [None]
  - PNEUMONIA [None]
